FAERS Safety Report 18563565 (Version 4)
Quarter: 2021Q2

REPORT INFORMATION
  Report Type: Spontaneous
  Country: JP (occurrence: JP)
  Receive Date: 20201201
  Receipt Date: 20210506
  Transmission Date: 20210717
  Serious: Yes (Other)
  Sender: FDA-Public Use
  Company Number: NVSJ2020JP010602

PATIENT
  Age: 88 Year
  Sex: Female
  Weight: 37.1 kg

DRUGS (2)
  1. BEOVU [Suspect]
     Active Substance: BROLUCIZUMAB-DBLL
     Dosage: 6 MG
     Route: 031
     Dates: start: 20200917, end: 20200917
  2. BEOVU [Suspect]
     Active Substance: BROLUCIZUMAB-DBLL
     Indication: AGE-RELATED MACULAR DEGENERATION
     Dosage: 6 MG
     Route: 031
     Dates: start: 20200811, end: 20200811

REACTIONS (9)
  - Retinal oedema [Unknown]
  - Retinal vasculitis [Recovered/Resolved]
  - Vitreous detachment [Recovered/Resolved]
  - Keratic precipitates [Recovered/Resolved]
  - Anterior chamber inflammation [Recovered/Resolved]
  - Retinal artery occlusion [Recovered/Resolved]
  - Ophthalmic artery thrombosis [Recovering/Resolving]
  - Ophthalmic herpes simplex [Recovered/Resolved]
  - Keratitis [Recovered/Resolved]

NARRATIVE: CASE EVENT DATE: 20200923
